FAERS Safety Report 7883735-8 (Version None)
Quarter: 2011Q4

REPORT INFORMATION
  Report Type: 
  Country: None (occurrence: None)
  Receive Date: 20111102
  Receipt Date: 20111028
  Transmission Date: 20120403
  Serious: Yes (Hospitalization)
  Sender: FDA-Public Use
  Company Number: US-ABBOTT-11P-163-0870049-00

PATIENT
  Age: 46 Year
  Sex: Male

DRUGS (6)
  1. ISOPTO HYOSCINE [Concomitant]
     Indication: PRODUCT USED FOR UNKNOWN INDICATION
     Dosage: GTTS
  2. HUMIRA [Suspect]
     Dates: start: 20110501
  3. TOBRADEX [Concomitant]
     Indication: EYE DISORDER
  4. DURICEF [Concomitant]
     Indication: PRODUCT USED FOR UNKNOWN INDICATION
     Dosage: GTTS
  5. HUMIRA [Suspect]
     Indication: JUVENILE ARTHRITIS
     Dates: start: 20091001, end: 20110401
  6. SYNTHROID [Concomitant]
     Indication: PRODUCT USED FOR UNKNOWN INDICATION

REACTIONS (3)
  - WHITE BLOOD CELL COUNT INCREASED [None]
  - DRUG DOSE OMISSION [None]
  - DRUG DISPENSING ERROR [None]
